FAERS Safety Report 9449176 (Version 2)
Quarter: 2013Q3

REPORT INFORMATION
  Report Type: Report from Study
  Country: DE (occurrence: DE)
  Receive Date: 20130808
  Receipt Date: 20130829
  Transmission Date: 20140515
  Serious: Yes (Death)
  Sender: FDA-Public Use
  Company Number: DE-ABBOTT-13P-062-1131137-00

PATIENT
  Age: 65 Year
  Sex: Male

DRUGS (7)
  1. TRENANTONE [Suspect]
     Indication: PROSTATE CANCER METASTATIC
     Route: 058
     Dates: start: 20120312, end: 20130516
  2. CHEMOTHERAPEUTICS [Concomitant]
     Indication: PROSTATE CANCER METASTATIC
     Dates: start: 20120312, end: 20120928
  3. CHEMOTHERAPEUTICS [Concomitant]
     Dates: start: 20121220, end: 20130228
  4. CHEMOTHERAPEUTICS [Concomitant]
     Dates: end: 20130516
  5. ANTIANDROGENS [Concomitant]
     Indication: ANTIANDROGEN THERAPY
     Dates: start: 20120928, end: 20121129
  6. ANTIANDROGENS [Concomitant]
     Indication: ANTIANDROGEN THERAPY
  7. DOCETAXEL [Concomitant]
     Indication: PRODUCT USED FOR UNKNOWN INDICATION
     Dates: start: 20121129, end: 201303

REACTIONS (4)
  - Prostate cancer [Fatal]
  - Metastases to liver [Fatal]
  - Metastases to peritoneum [Fatal]
  - Ileus [Fatal]
